FAERS Safety Report 9999243 (Version 2)
Quarter: 2014Q2

REPORT INFORMATION
  Report Type: Report from Study
  Country: US (occurrence: US)
  Receive Date: 20140312
  Receipt Date: 20140417
  Transmission Date: 20141212
  Serious: Yes (Other)
  Sender: FDA-Public Use
  Company Number: US-AMGEN-USACT2014015577

PATIENT
  Age: 69 Year
  Sex: Male

DRUGS (7)
  1. PEGFILGRASTIM [Suspect]
     Indication: GRANULOCYTE COUNT DECREASED
     Dosage: 6 MG, ON DAY 4
     Route: 058
  2. FILGRASTIM [Suspect]
     Indication: GRANULOCYTE COUNT DECREASED
     Dosage: 5-10 MCG/KG, DAILY ON DAY 4
     Route: 065
  3. INOTUZUMAB OZOGAMICIN [Concomitant]
     Indication: ACUTE LYMPHOCYTIC LEUKAEMIA
     Dosage: 1.3 MG/M2, ON DAY 2 OR 3 (CYCLES 2 AND 4 ONLY)
     Route: 042
     Dates: start: 20121203
  4. METHOTREXATE SODIUM [Concomitant]
     Indication: ACUTE LYMPHOCYTIC LEUKAEMIA
     Dosage: 50 MG/M2, OVER 2 HRS ON DAY 1
     Route: 042
  5. METHOTREXATE SODIUM [Concomitant]
     Dosage: 200 MG/M2,  CONTINUOUS INFUSION OVER 22 HRS ON DAY 1
     Route: 041
  6. ARA CELL [Concomitant]
     Indication: ACUTE LYMPHOCYTIC LEUKAEMIA
     Dosage: 0.5 G/M2, OVER 3 HOURS  TWICE A DAY X 4 DOSES ON DAYS 2 AND 3, INTRAVENOUS
     Route: 042
  7. RITUXIMAB [Concomitant]
     Indication: ACUTE LYMPHOCYTIC LEUKAEMIA
     Dosage: 375 MG/ ON DAY 2 AND 8 OF CYCLES 2 AND 4
     Route: 042

REACTIONS (1)
  - Sepsis [Recovered/Resolved]
